FAERS Safety Report 17719944 (Version 1)
Quarter: 2020Q2

REPORT INFORMATION
  Report Type: Spontaneous
  Country: ES (occurrence: ES)
  Receive Date: 20200428
  Receipt Date: 20200428
  Transmission Date: 20200714
  Serious: Yes (Other)
  Sender: FDA-Public Use
  Company Number: ES-BAUSCH-BL-2020-012367

PATIENT
  Age: 63 Year
  Sex: Female

DRUGS (2)
  1. DEXAMETASONA [Suspect]
     Active Substance: DEXAMETHASONE
     Indication: CORONAVIRUS INFECTION
     Dosage: 20 MG DIA
     Route: 042
     Dates: start: 20200328, end: 20200401
  2. DEXAMETASONA [Suspect]
     Active Substance: DEXAMETHASONE
     Indication: PNEUMONIA

REACTIONS (1)
  - Pancreatitis acute [Recovered/Resolved]

NARRATIVE: CASE EVENT DATE: 20200401
